FAERS Safety Report 23247147 (Version 5)
Quarter: 2024Q1

REPORT INFORMATION
  Report Type: Spontaneous
  Country: JP (occurrence: JP)
  Receive Date: 20231130
  Receipt Date: 20240226
  Transmission Date: 20240409
  Serious: No
  Sender: FDA-Public Use
  Company Number: JP-JNJFOC-20231139838

PATIENT
  Age: 74 Year
  Sex: Female

DRUGS (3)
  1. SIMPONI [Suspect]
     Active Substance: GOLIMUMAB
     Indication: Rheumatoid arthritis
     Dosage: STRENGTH: 50.00 MG / 0.50 ML
     Route: 058
  2. SIMPONI [Suspect]
     Active Substance: GOLIMUMAB
     Dosage: STRENGTH: 50.00 MG / 0.50 ML
     Route: 058
     Dates: start: 20231113
  3. SIMPONI [Suspect]
     Active Substance: GOLIMUMAB
     Dosage: DOSE UNKNOWN
     Route: 058

REACTIONS (5)
  - Device deployment issue [Unknown]
  - Needle issue [Unknown]
  - Injury associated with device [Unknown]
  - Product administered at inappropriate site [Unknown]
  - Off label use [Unknown]

NARRATIVE: CASE EVENT DATE: 20231113
